FAERS Safety Report 7753753-9 (Version None)
Quarter: 2011Q3

REPORT INFORMATION
  Report Type: 
  Country: None (occurrence: None)
  Receive Date: 20110915
  Receipt Date: 20110914
  Transmission Date: 20111222
  Serious: No
  Sender: FDA-Public Use
  Company Number: JP-B.I. PHARMACEUTICALS,INC./RIDGEFIELD-2011-BP-19378NB

PATIENT
  Sex: Female
  Weight: 49 kg

DRUGS (6)
  1. PRADAXA [Suspect]
     Indication: ATRIAL FIBRILLATION
     Dosage: 300 MG
     Route: 065
     Dates: start: 20110720, end: 20110803
  2. LANIRAPID [Concomitant]
     Indication: DISUSE SYNDROME
     Dosage: 0.05 MG
     Route: 048
  3. AMLODIN OD [Concomitant]
     Indication: HYPERTENSION
     Dosage: 5 MG
     Route: 048
  4. LANSOPRAZOLE [Concomitant]
     Dosage: 15 MG
     Route: 048
  5. DIART [Concomitant]
     Indication: DISUSE SYNDROME
     Dosage: 60 MG
     Route: 048
  6. SIGMART [Concomitant]
     Indication: DISUSE SYNDROME
     Dosage: 7.5 MG
     Route: 048

REACTIONS (7)
  - VOMITING [None]
  - FEELING COLD [None]
  - TACHYCARDIA [None]
  - URINARY TRACT INFECTION [None]
  - ABDOMINAL PAIN UPPER [None]
  - PYREXIA [None]
  - CHEST PAIN [None]
